FAERS Safety Report 20850819 (Version 1)
Quarter: 2022Q2

REPORT INFORMATION
  Report Type: Spontaneous
  Country: US (occurrence: US)
  Receive Date: 20220519
  Receipt Date: 20220519
  Transmission Date: 20220721
  Serious: Yes (Other)
  Sender: FDA-Public Use
  Company Number: US-GLAXOSMITHKLINE-US2022AMR078292

PATIENT

DRUGS (1)
  1. WELLBUTRIN [Suspect]
     Active Substance: BUPROPION HYDROCHLORIDE
     Indication: Product used for unknown indication
     Dosage: UNK

REACTIONS (6)
  - Mental impairment [Unknown]
  - Cerebral disorder [Unknown]
  - Stress [Unknown]
  - Weight increased [Unknown]
  - Pain in extremity [Unknown]
  - Drug ineffective [Unknown]
